FAERS Safety Report 7125642-4 (Version None)
Quarter: 2010Q4

REPORT INFORMATION
  Report Type: 
  Country: None (occurrence: None)
  Receive Date: 20101129
  Receipt Date: 20101116
  Transmission Date: 20110411
  Serious: No
  Sender: FDA-Public Use
  Company Number: US-JNJFOC-20101106949

PATIENT
  Sex: Female
  Weight: 63.05 kg

DRUGS (13)
  1. FENTANYL-100 [Suspect]
     Indication: PAIN
     Dosage: NDC NUMBER: 0781-7241-55
     Route: 062
  2. FENTANYL-100 [Suspect]
     Indication: INTERVERTEBRAL DISC PROTRUSION
     Dosage: NDC NUMBER: 0781-7241-55
     Route: 062
  3. FENTANYL CITRATE [Suspect]
     Indication: PAIN
     Route: 062
  4. FENTANYL CITRATE [Suspect]
     Indication: INTERVERTEBRAL DISC PROTRUSION
     Route: 062
  5. PERCOCET [Concomitant]
     Indication: PAIN
     Dosage: 10-325 MG
     Route: 048
  6. SOMA [Concomitant]
     Indication: BACK DISORDER
     Route: 048
  7. SOMA [Concomitant]
     Indication: MUSCLE RELAXANT THERAPY
     Route: 048
  8. NIASPAN [Concomitant]
     Indication: BLOOD TRIGLYCERIDES INCREASED
     Route: 048
  9. NEURONTIN [Concomitant]
     Indication: NERVE INJURY
     Route: 048
  10. ZANAFLEX [Concomitant]
     Indication: BACK DISORDER
     Route: 048
  11. ZANAFLEX [Concomitant]
     Indication: MUSCLE RELAXANT THERAPY
     Route: 048
  12. ASPIRIN [Concomitant]
     Indication: HOT FLUSH
     Route: 048
  13. VYTORIN [Concomitant]
     Indication: BLOOD TRIGLYCERIDES INCREASED
     Dosage: 10-40 MG
     Route: 048

REACTIONS (2)
  - PRODUCT QUALITY ISSUE [None]
  - WRONG TECHNIQUE IN DRUG USAGE PROCESS [None]
